FAERS Safety Report 21705648 (Version 3)
Quarter: 2023Q1

REPORT INFORMATION
  Report Type: Spontaneous
  Country: HN (occurrence: HN)
  Receive Date: 20221209
  Receipt Date: 20230109
  Transmission Date: 20230418
  Serious: No
  Sender: FDA-Public Use
  Company Number: HN-PFIZER INC-PV202200118846

PATIENT
  Age: 14 Year
  Sex: Male

DRUGS (1)
  1. GENOTROPIN [Suspect]
     Active Substance: SOMATROPIN
     Dosage: 1 MG
     Dates: start: 202202

REACTIONS (3)
  - Drug dose omission by device [Unknown]
  - Device leakage [Unknown]
  - Device information output issue [Unknown]

NARRATIVE: CASE EVENT DATE: 20220101
